FAERS Safety Report 20604256 (Version 1)
Quarter: 2022Q1

REPORT INFORMATION
  Report Type: Spontaneous
  Country: US (occurrence: US)
  Receive Date: 20220316
  Receipt Date: 20220316
  Transmission Date: 20220423
  Serious: Yes (Other)
  Sender: FDA-Public Use
  Company Number: US-SA-SAC20220315000620

PATIENT
  Age: 70 Year
  Sex: Male

DRUGS (1)
  1. ZANTAC [Suspect]
     Active Substance: RANITIDINE HYDROCHLORIDE
     Indication: Dyspepsia
     Dosage: 150 MG, FREQUENCY: PERIODS OF NON-USE
     Route: 065
     Dates: start: 200901, end: 201701

REACTIONS (3)
  - Colorectal cancer [Unknown]
  - Thyroid cancer stage 0 [Unknown]
  - Skin cancer [Unknown]

NARRATIVE: CASE EVENT DATE: 20170101
